FAERS Safety Report 6616749-6 (Version None)
Quarter: 2010Q1

REPORT INFORMATION
  Report Type: 
  Country: None (occurrence: None)
  Receive Date: 20100305
  Receipt Date: 20100301
  Transmission Date: 20100710
  Serious: Yes (Other)
  Sender: FDA-Public Use
  Company Number: CN-PFIZER INC-2010025609

PATIENT
  Age: 60 Year
  Sex: Male

DRUGS (2)
  1. VIAGRA [Suspect]
     Indication: ERECTILE DYSFUNCTION
     Dosage: 25MG TO 100MG
     Route: 048
  2. VIAGRA [Suspect]
     Dosage: 75 MG, UNK
     Dates: start: 20100128

REACTIONS (5)
  - LARYNGITIS [None]
  - OCULAR HYPERAEMIA [None]
  - PHARYNGEAL EROSION [None]
  - PHARYNGITIS [None]
  - RASH [None]
